FAERS Safety Report 10549845 (Version 1)
Quarter: 2014Q4

REPORT INFORMATION
  Report Type: Spontaneous
  Country: US (occurrence: None)
  Receive Date: 20141015
  Receipt Date: 20141015
  Transmission Date: 20150529
  Serious: No
  Sender: FDA-Public Use
  Company Number: 2014US003475

PATIENT
  Age: 98 Year
  Sex: Female
  Weight: 68 kg

DRUGS (6)
  1. LEVOTHYROXINE SODIUM (LEVOTHYROXINE SODIUM) [Concomitant]
  2. LATANOPROST (LATANOPROST) (NONE) [Concomitant]
     Active Substance: LATANOPROST
  3. FUROSEMIDE (FUROSEMIDE SODIUM) [Concomitant]
  4. ICLUSIG [Suspect]
     Active Substance: PONATINIB
     Indication: CHRONIC MYELOID LEUKAEMIA
     Route: 048
     Dates: end: 20140701
  5. CRESTOR [Concomitant]
     Active Substance: ROSUVASTATIN CALCIUM
  6. ESTRADIOL (ESTRADIOL) (GEL) [Concomitant]
     Active Substance: ESTRADIOL

REACTIONS (2)
  - Fatigue [None]
  - Diplopia [None]

NARRATIVE: CASE EVENT DATE: 201406
